FAERS Safety Report 9049063 (Version 1)
Quarter: 2013Q1

REPORT INFORMATION
  Report Type: Spontaneous
  Country: US (occurrence: None)
  Receive Date: 20130129
  Receipt Date: 20130129
  Transmission Date: 20140127
  Serious: No
  Sender: FDA-Public Use
  Company Number: None

PATIENT
  Age: 57 Year
  Sex: Female

DRUGS (1)
  1. VENLAFAXINE [Suspect]
     Dates: start: 20101025, end: 20101110

REACTIONS (10)
  - Product substitution issue [None]
  - Stress [None]
  - Gastrointestinal disorder [None]
  - Irritability [None]
  - Anxiety [None]
  - Disturbance in attention [None]
  - Depression [None]
  - Condition aggravated [None]
  - Social problem [None]
  - Mental disorder [None]
